FAERS Safety Report 16404247 (Version 1)
Quarter: 2019Q2

REPORT INFORMATION
  Report Type: Spontaneous
  Country: BG (occurrence: BG)
  Receive Date: 20190607
  Receipt Date: 20190607
  Transmission Date: 20190711
  Serious: Yes (Hospitalization, Disabling, Other)
  Sender: FDA-Public Use
  Company Number: PHHY2019BG128514

PATIENT

DRUGS (4)
  1. URBASON [Suspect]
     Active Substance: METHYLPREDNISOLONE
     Indication: IMMUNOSUPPRESSANT DRUG THERAPY
     Dosage: 40 MG, QD
     Route: 065
     Dates: start: 20150125
  2. TACROLIMUS. [Suspect]
     Active Substance: TACROLIMUS
     Indication: IMMUNOSUPPRESSION
     Dosage: 6 MG, QD
     Route: 065
     Dates: start: 20150125, end: 20160209
  3. ULCOPROL [Concomitant]
     Indication: PROPHYLAXIS
     Dosage: 40 MG, QD
     Route: 048
     Dates: start: 20150125
  4. CELLCEPT [Suspect]
     Active Substance: MYCOPHENOLATE MOFETIL\MYCOPHENOLATE MOFETIL HYDROCHLORIDE
     Indication: IMMUNOSUPPRESSANT DRUG THERAPY
     Dosage: 2000 MG, QD
     Route: 065
     Dates: start: 20150125

REACTIONS (3)
  - Lymphocele [Not Recovered/Not Resolved]
  - Kidney transplant rejection [Not Recovered/Not Resolved]
  - Sepsis [Recovering/Resolving]

NARRATIVE: CASE EVENT DATE: 20150209
